FAERS Safety Report 13624048 (Version 1)
Quarter: 2017Q2

REPORT INFORMATION
  Report Type: Spontaneous
  Country: US (occurrence: US)
  Receive Date: 20170607
  Receipt Date: 20170607
  Transmission Date: 20170830
  Serious: No
  Sender: FDA-Public Use
  Company Number: US-PURDUE-USA-2016-0134776

PATIENT
  Age: 68 Year
  Sex: Female

DRUGS (3)
  1. BUTRANS [Suspect]
     Active Substance: BUPRENORPHINE
     Indication: OSTEOARTHRITIS
  2. BUTRANS [Suspect]
     Active Substance: BUPRENORPHINE
     Indication: PAIN
     Dosage: 20 MCG/HR, WEEKLY
     Route: 062
     Dates: start: 20160204, end: 20161021
  3. NORCO [Concomitant]
     Active Substance: ACETAMINOPHEN\HYDROCODONE BITARTRATE
     Indication: PAIN
     Dosage: 10/325 MG, UNK
     Route: 065

REACTIONS (3)
  - Application site pruritus [Recovered/Resolved]
  - Application site vesicles [Recovered/Resolved]
  - Application site rash [Recovered/Resolved]

NARRATIVE: CASE EVENT DATE: 20161021
